FAERS Safety Report 13817649 (Version 2)
Quarter: 2017Q3

REPORT INFORMATION
  Report Type: Spontaneous
  Country: BG (occurrence: BG)
  Receive Date: 20170731
  Receipt Date: 20170810
  Transmission Date: 20171127
  Serious: Yes (Life-Threatening)
  Sender: FDA-Public Use
  Company Number: BG-ELI_LILLY_AND_COMPANY-BG201707011525

PATIENT
  Age: 56 Year
  Sex: Male
  Weight: 62 kg

DRUGS (2)
  1. ERBITUX [Suspect]
     Active Substance: CETUXIMAB
     Indication: GLOTTIS CARCINOMA
     Dosage: 700 MG, UNKNOWN
     Route: 042
     Dates: start: 20170707, end: 20170707
  2. DEXAMETHASONE. [Concomitant]
     Active Substance: DEXAMETHASONE
     Indication: PREMEDICATION
     Dosage: 8 MG, UNKNOWN
     Route: 042
     Dates: start: 20170707

REACTIONS (5)
  - Pruritus [Recovered/Resolved]
  - Rash [Recovered/Resolved]
  - Asphyxia [Recovered/Resolved]
  - Loss of consciousness [Recovered/Resolved]
  - Bronchospasm [Recovered/Resolved]

NARRATIVE: CASE EVENT DATE: 20170707
